FAERS Safety Report 11148700 (Version 1)
Quarter: 2015Q2

REPORT INFORMATION
  Report Type: Spontaneous
  Country: US (occurrence: None)
  Receive Date: 20150527
  Receipt Date: 20150527
  Transmission Date: 20150821
  Serious: Yes (Other)
  Sender: FDA-Public Use
  Company Number: 201505-US-000975

PATIENT
  Age: 65 Year
  Sex: Male

DRUGS (2)
  1. NAPROSYN [Suspect]
     Active Substance: NAPROXEN
     Indication: ARTHRITIS
  2. FLEET [Suspect]
     Active Substance: BISACODYL\GLYCERIN\MINERAL OIL\SODIUM PHOSPHATE, DIBASIC\SODIUM PHOSPHATE, MONOBASIC
     Indication: FUNCTIONAL GASTROINTESTINAL DISORDER
     Route: 054

REACTIONS (5)
  - Incorrect drug administration duration [None]
  - Drug prescribing error [None]
  - Chronic kidney disease [None]
  - Diarrhoea [None]
  - Off label use [None]

NARRATIVE: CASE EVENT DATE: 20150513
